FAERS Safety Report 5588795-5 (Version None)
Quarter: 2007Q4

REPORT INFORMATION
  Report Type: 
  Country: None (occurrence: None)
  Receive Date: 20071211
  Receipt Date: 20071031
  Transmission Date: 20080405
  Serious: No
  Sender: FDA-Public Use
  Company Number: 002#2#2007-00295

PATIENT
  Age: 74 Year
  Sex: Male

DRUGS (10)
  1. NEUPRO [Suspect]
     Indication: PARKINSON'S DISEASE
     Dosage: 2MG/24H,1 IN 1 D,TRANSDERMAL ; 4MG/24H,1 IN 1 D,TRANSDERMAL
     Route: 062
     Dates: start: 20071014, end: 20071020
  2. NEUPRO [Suspect]
     Indication: PARKINSON'S DISEASE
     Dosage: 2MG/24H,1 IN 1 D,TRANSDERMAL ; 4MG/24H,1 IN 1 D,TRANSDERMAL
     Route: 062
     Dates: start: 20071021
  3. STARLIX [Concomitant]
  4. AMANTADINE HCL [Concomitant]
  5. PRAMIPEXOLE DIHYDROCHLORIDE [Concomitant]
  6. LAMIVUDINE [Concomitant]
  7. SULFAMETHOXAZOLE [Concomitant]
  8. TACROLIMUS [Concomitant]
  9. STOOL SOFTENER [Concomitant]
  10. PROVIGIL [Concomitant]

REACTIONS (4)
  - BLOOD GLUCOSE INCREASED [None]
  - FATIGUE [None]
  - HYPERHIDROSIS [None]
  - SOMNOLENCE [None]
